FAERS Safety Report 7422146-6 (Version None)
Quarter: 2011Q2

REPORT INFORMATION
  Report Type: 
  Country: None (occurrence: None)
  Receive Date: 20110418
  Receipt Date: 20110221
  Transmission Date: 20111010
  Serious: Yes (Disabling, Other)
  Sender: FDA-Public Use
  Company Number: US-BAYER-201036678NA

PATIENT
  Age: 18 Year
  Sex: Female
  Weight: 45 kg

DRUGS (4)
  1. VICODIN [Concomitant]
     Route: 048
  2. YASMIN [Suspect]
     Indication: MENSTRUATION IRREGULAR
     Dosage: UNK UNK, QD
     Route: 048
     Dates: start: 20070612, end: 20090901
  3. YAZ [Suspect]
     Indication: MENSTRUATION IRREGULAR
     Dosage: UNK, QD
     Route: 048
     Dates: start: 20070612, end: 20090901
  4. NORTRIPTYLINE [Concomitant]
     Dosage: 10 MG, UNK
     Route: 048
     Dates: start: 20080715

REACTIONS (4)
  - DIARRHOEA [None]
  - COELIAC ARTERY COMPRESSION SYNDROME [None]
  - CHOLELITHIASIS [None]
  - WEIGHT DECREASED [None]
